FAERS Safety Report 9403434 (Version 1)
Quarter: 2013Q3

REPORT INFORMATION
  Report Type: Spontaneous
  Country: DE (occurrence: DE)
  Receive Date: 20130716
  Receipt Date: 20130716
  Transmission Date: 20140515
  Serious: Yes (Other)
  Sender: FDA-Public Use
  Company Number: DE-EISAI INC-E2007-01230-SPO-DE

PATIENT
  Age: 26 Year
  Sex: Female
  Weight: 50 kg

DRUGS (3)
  1. FYCOMPA (PERAMPANEL) [Suspect]
     Indication: EPILEPSY
     Dosage: 4 MG/DAY
     Route: 048
     Dates: start: 20130611, end: 20130623
  2. LUMINAL [Concomitant]
     Indication: EPILEPSY
     Dosage: 100 MG/DAY
     Route: 048
  3. RIVOTRIL [Concomitant]
     Indication: EPILEPSY
     Dosage: 2 MG/DAY
     Route: 048

REACTIONS (3)
  - Muscle spasticity [Recovered/Resolved]
  - Convulsion [Recovered/Resolved]
  - Off label use [Recovered/Resolved]
